FAERS Safety Report 9003694 (Version 1)
Quarter: 2013Q1

REPORT INFORMATION
  Report Type: Spontaneous
  Country: US (occurrence: US)
  Receive Date: 20130108
  Receipt Date: 20130108
  Transmission Date: 20140127
  Serious: No
  Sender: FDA-Public Use
  Company Number: US-GLAXOSMITHKLINE-A0962718A

PATIENT
  Sex: Male

DRUGS (2)
  1. LOVAZA [Suspect]
     Indication: BLOOD TRIGLYCERIDES INCREASED
     Dosage: 2G PER DAY
     Route: 048
     Dates: start: 201109
  2. NO CONCURRENT MEDICATION [Concomitant]

REACTIONS (1)
  - Local swelling [Not Recovered/Not Resolved]
